FAERS Safety Report 7466116-0 (Version None)
Quarter: 2011Q2

REPORT INFORMATION
  Report Type: 
  Country: None (occurrence: None)
  Receive Date: 20110428
  Receipt Date: 20110413
  Transmission Date: 20111010
  Serious: Yes (Other)
  Sender: FDA-Public Use
  Company Number: AUR-APL-2011-01186

PATIENT
  Age: 72 Year
  Sex: Male

DRUGS (5)
  1. METOPROLOL SUCCINATE [Suspect]
     Dosage: 100 MG, DAILY;
  2. TROMBYL [Concomitant]
  3. SIMVASTATIN [Suspect]
     Dosage: 40 MG, DAILY,
     Dates: start: 20080101
  4. RAMIPRIL [Suspect]
     Dosage: 5MG, DAILY;
  5. LIPITOR [Concomitant]

REACTIONS (3)
  - HYPOTENSION [None]
  - GAIT DISTURBANCE [None]
  - HEART RATE DECREASED [None]
